FAERS Safety Report 5322009-6 (Version None)
Quarter: 2007Q2

REPORT INFORMATION
  Report Type: 
  Country: None (occurrence: None)
  Receive Date: 20070508
  Receipt Date: 20070508
  Transmission Date: 20071010
  Serious: Yes (Hospitalization)
  Sender: FDA-Public Use
  Company Number: None

PATIENT
  Age: 22 Year
  Sex: Female
  Weight: 63.5036 kg

DRUGS (6)
  1. CYMBALTA [Suspect]
     Indication: ANXIETY
     Dosage: 30MG ONCE DAILY PO
     Route: 048
     Dates: start: 20070325, end: 20070422
  2. CYMBALTA [Suspect]
     Indication: DEPRESSION
     Dosage: 30MG ONCE DAILY PO
     Route: 048
     Dates: start: 20070325, end: 20070422
  3. CYMBALTA [Suspect]
     Indication: PAIN
     Dosage: 30MG ONCE DAILY PO
     Route: 048
     Dates: start: 20070325, end: 20070422
  4. CYMBALTA [Suspect]
     Indication: ANXIETY
     Dosage: 60MG ONCE DAILY PO
     Route: 048
     Dates: start: 20070325, end: 20070425
  5. CYMBALTA [Suspect]
     Indication: DEPRESSION
     Dosage: 60MG ONCE DAILY PO
     Route: 048
     Dates: start: 20070325, end: 20070425
  6. CYMBALTA [Suspect]
     Indication: PAIN
     Dosage: 60MG ONCE DAILY PO
     Route: 048
     Dates: start: 20070325, end: 20070425

REACTIONS (20)
  - ABNORMAL BEHAVIOUR [None]
  - ASTHENIA [None]
  - CRYING [None]
  - DRUG HYPERSENSITIVITY [None]
  - DYSSTASIA [None]
  - FEELING COLD [None]
  - FEELING HOT [None]
  - FORMICATION [None]
  - HYPERHIDROSIS [None]
  - INSOMNIA [None]
  - IRRITABILITY [None]
  - MOOD SWINGS [None]
  - NAUSEA [None]
  - NIGHTMARE [None]
  - PRESYNCOPE [None]
  - SCREAMING [None]
  - SKIN DISORDER [None]
  - STOMACH DISCOMFORT [None]
  - TREMOR [None]
  - VERTIGO [None]
